FAERS Safety Report 4524963-9 (Version None)
Quarter: 2004Q4

REPORT INFORMATION
  Report Type: 
  Country: None (occurrence: None)
  Receive Date: 20041210
  Receipt Date: 20041123
  Transmission Date: 20050328
  Serious: Yes (Other)
  Sender: FDA-Public Use
  Company Number: 2004AL001672

PATIENT
  Sex: Male

DRUGS (3)
  1. TUSSIN CF [Suspect]
     Indication: HYPERSENSITIVITY
  2. TUSSIN CF [Suspect]
     Indication: INFLUENZA
  3. TUSSIN CF [Suspect]
     Indication: NASOPHARYNGITIS

REACTIONS (1)
  - HAEMORRHAGIC STROKE [None]
